FAERS Safety Report 21077731 (Version 1)
Quarter: 2022Q3

REPORT INFORMATION
  Report Type: Spontaneous
  Country: FR (occurrence: FR)
  Receive Date: 20220713
  Receipt Date: 20220713
  Transmission Date: 20221027
  Serious: Yes (Other)
  Sender: FDA-Public Use
  Company Number: None

PATIENT
  Age: 56 Year
  Sex: Male
  Weight: 165 kg

DRUGS (21)
  1. VENLAFAXINE HYDROCHLORIDE [Interacting]
     Active Substance: VENLAFAXINE HYDROCHLORIDE
     Dosage: UNK
  2. LYRICA [Interacting]
     Active Substance: PREGABALIN
     Dosage: UNK
  3. LEVOFLOXACIN [Interacting]
     Active Substance: LEVOFLOXACIN
     Indication: Intervertebral discitis
     Dosage: 750 MG
     Dates: start: 20210124, end: 20210126
  4. LEVOFLOXACIN [Interacting]
     Active Substance: LEVOFLOXACIN
     Dosage: 2 DF (500MGX 2)
     Dates: start: 20210127, end: 20210131
  5. GENTAMICIN SULFATE [Concomitant]
     Active Substance: GENTAMICIN SULFATE
     Indication: Intervertebral discitis
     Dosage: UNK
     Dates: start: 20210130, end: 20210131
  6. TRULICITY [Concomitant]
     Active Substance: DULAGLUTIDE
     Dosage: UNK
  7. CYAMEMAZINE [Concomitant]
     Active Substance: CYAMEMAZINE
     Dosage: UNK
     Dates: start: 20210126
  8. KARDEGIC [Concomitant]
     Active Substance: ASPIRIN DL-LYSINE
     Dosage: UNK
  9. TAHOR [Concomitant]
     Active Substance: ATORVASTATIN CALCIUM
     Dosage: UNK
  10. ALDACTONE [Concomitant]
     Active Substance: SPIRONOLACTONE
     Dosage: UNK
  11. HUMALOG [Concomitant]
     Active Substance: INSULIN LISPRO
     Dosage: UNK
  12. MANIDIPINE [Concomitant]
     Active Substance: MANIDIPINE
     Dosage: UNK
  13. IMOVANE [Concomitant]
     Active Substance: ZOPICLONE
     Dosage: UNK
  14. DOLIPRANE [Concomitant]
     Active Substance: ACETAMINOPHEN
     Dosage: UNK
  15. METFORMIN HYDROCHLORIDE [Concomitant]
     Active Substance: METFORMIN HYDROCHLORIDE
     Dosage: UNK
  16. FERROUS SULFATE [Concomitant]
     Active Substance: FERROUS SULFATE
     Dosage: UNK
  17. POLYETHYLENE GLYCOL 4000 [Concomitant]
     Active Substance: POLYETHYLENE GLYCOL 4000
     Dosage: UNK
  18. HYDROCHLOROTHIAZIDE\LOSARTAN POTASSIUM [Concomitant]
     Active Substance: HYDROCHLOROTHIAZIDE\LOSARTAN POTASSIUM
     Dosage: UNK
  19. OMEPRAZOLE [Concomitant]
     Active Substance: OMEPRAZOLE
     Dosage: UNK
  20. INSULIN GLARGINE [Concomitant]
     Active Substance: INSULIN GLARGINE
     Dosage: UNK
  21. CLOXACILLIN [Concomitant]
     Active Substance: CLOXACILLIN
     Indication: Intervertebral discitis
     Dosage: UNK
     Dates: start: 20210129, end: 20210130

REACTIONS (2)
  - Electrocardiogram QT prolonged [Recovered/Resolved]
  - Drug interaction [Unknown]

NARRATIVE: CASE EVENT DATE: 20210131
